FAERS Safety Report 10017544 (Version 1)
Quarter: 2014Q1

REPORT INFORMATION
  Report Type: Spontaneous
  Country: US (occurrence: None)
  Receive Date: 20140313
  Receipt Date: 20140313
  Transmission Date: 20141002
  Serious: Yes (Other)
  Sender: FDA-Public Use
  Company Number: None

PATIENT
  Age: 58 Year
  Sex: Female
  Weight: 74.84 kg

DRUGS (2)
  1. LISINOPRIL-HCTZ [Suspect]
     Indication: HYPERTENSION
     Route: 048
     Dates: start: 20140204, end: 20140205
  2. AZATHIOPRINE [Concomitant]

REACTIONS (4)
  - Rash [None]
  - Rash [None]
  - Swelling face [None]
  - Rash [None]
